FAERS Safety Report 8106229-3 (Version None)
Quarter: 2012Q1

REPORT INFORMATION
  Report Type: 
  Country: None (occurrence: None)
  Receive Date: 20120131
  Receipt Date: 20120123
  Transmission Date: 20120608
  Serious: No
  Sender: FDA-Public Use
  Company Number: 2012SP001888

PATIENT
  Age: 86 Year
  Sex: Female

DRUGS (7)
  1. LEVOFLOXACIN [Concomitant]
  2. REMERON [Suspect]
     Indication: PRODUCT USED FOR UNKNOWN INDICATION
     Dosage: 30 MG; QD; PO
     Route: 048
     Dates: start: 20110314, end: 20110614
  3. FLUXUM [Concomitant]
  4. ASPIRIN [Concomitant]
  5. MOTILIUM [Concomitant]
  6. PANTOPRAZOLE SODIUM [Concomitant]
  7. PIPERACILLIN AND TAZOBACTAM [Concomitant]

REACTIONS (1)
  - LONG QT SYNDROME [None]
